FAERS Safety Report 5243161-7 (Version None)
Quarter: 2007Q1

REPORT INFORMATION
  Report Type: 
  Country: None (occurrence: None)
  Receive Date: 20070215
  Receipt Date: 20070201
  Transmission Date: 20070707
  Serious: Yes (Other)
  Sender: FDA-Public Use
  Company Number: B0336341A

PATIENT
  Age: 8 Year
  Sex: Male

DRUGS (7)
  1. FLUTICASONE PROPIONATE+SALMETEROL XINAFOATE ACCUHALER (FLUTICASONE+SAL [Suspect]
     Dosage: TWICE PER DAY INHALED
     Route: 055
  2. FLUTICASONE PROPIONATE [Concomitant]
  3. ALBUTEROL SULFATE [Concomitant]
  4. HYPOSENSITIZATION THERAPY [Concomitant]
  5. DESLORATADINE [Concomitant]
  6. MONTELUKAST SODIUM [Concomitant]
  7. HERBAL MEDICATION [Concomitant]

REACTIONS (3)
  - ABNORMAL BEHAVIOUR [None]
  - AGGRESSION [None]
  - DRUG WITHDRAWAL SYNDROME [None]
